FAERS Safety Report 4375337-5 (Version None)
Quarter: 2004Q2

REPORT INFORMATION
  Report Type: 
  Country: None (occurrence: None)
  Receive Date: 20040602
  Receipt Date: 20040518
  Transmission Date: 20050107
  Serious: Yes (Other)
  Sender: FDA-Public Use
  Company Number: 601272

PATIENT
  Age: 1 Year
  Sex: Male
  Weight: 12 kg

DRUGS (6)
  1. ADVATE [Suspect]
     Indication: FACTOR VIII DEFICIENCY
     Dosage: 400 IU; TIW; INTRAVENOUS
     Route: 042
     Dates: start: 20030925, end: 20040512
  2. ADVATE [Suspect]
  3. ADVATE [Suspect]
  4. ADVATE [Suspect]
  5. ADVATE [Suspect]
  6. AMICAR [Concomitant]

REACTIONS (4)
  - COAGULATION FACTOR VIII LEVEL INCREASED [None]
  - FALL [None]
  - HAEMORRHAGE [None]
  - WOUND SECRETION [None]
